FAERS Safety Report 17348265 (Version 1)
Quarter: 2020Q1

REPORT INFORMATION
  Report Type: Report from Study
  Country: US (occurrence: US)
  Receive Date: 20200129
  Receipt Date: 20200129
  Transmission Date: 20200409
  Serious: No
  Sender: FDA-Public Use
  Company Number: US-EXELIXIS-CABO-19023731

PATIENT
  Sex: Male
  Weight: 77.01 kg

DRUGS (1)
  1. CABOMETYX [Suspect]
     Active Substance: CABOZANTINIB S-MALATE
     Indication: HEPATOCELLULAR CARCINOMA
     Dosage: 60 MG, QD (IN THE MORNING ON AN EMPTY STOMACH)
     Route: 048
     Dates: start: 20190822

REACTIONS (8)
  - Malignant neoplasm progression [Unknown]
  - Decreased appetite [Unknown]
  - Asthenia [Unknown]
  - Malaise [Unknown]
  - Diarrhoea [Not Recovered/Not Resolved]
  - Pallor [Unknown]
  - Oral pain [Recovering/Resolving]
  - Nausea [Not Recovered/Not Resolved]
